FAERS Safety Report 18340420 (Version 1)
Quarter: 2020Q4

REPORT INFORMATION
  Report Type: Other
  Country: NL (occurrence: PT)
  Receive Date: 20201002
  Receipt Date: 20201002
  Transmission Date: 20210113
  Serious: Yes (Death, Other)
  Sender: FDA-Public Use
  Company Number: NL-KOWA-20EU002836

PATIENT

DRUGS (2)
  1. PITAVASTATIN. [Suspect]
     Active Substance: PITAVASTATIN CALCIUM
     Indication: DYSLIPIDAEMIA
  2. ATORVASTATIN [Suspect]
     Active Substance: ATORVASTATIN
     Indication: DYSLIPIDAEMIA

REACTIONS (8)
  - Asthenia [Fatal]
  - Muscular weakness [Fatal]
  - Pneumonia bacterial [Unknown]
  - Weight decreased [Fatal]
  - Decreased appetite [Fatal]
  - Myalgia [Fatal]
  - Immune-mediated myositis [Fatal]
  - Gait disturbance [Fatal]
